FAERS Safety Report 22639492 (Version 4)
Quarter: 2024Q2

REPORT INFORMATION
  Report Type: Other
  Country: US (occurrence: None)
  Receive Date: 20230626
  Receipt Date: 20240601
  Transmission Date: 20240716
  Serious: Yes (Death, Other)
  Sender: FDA-Public Use
  Company Number: US-ROCHE-3374592

PATIENT

DRUGS (7)
  1. VENETOCLAX [Suspect]
     Active Substance: VENETOCLAX
     Indication: Mantle cell lymphoma
     Dosage: AT CYCLE 2 WITH STANDARD 5-WK RAMP-UP TO 400 MG/D AND CONTINUED FOR 2 Y.
     Route: 048
  2. RITUXIMAB [Suspect]
     Active Substance: RITUXIMAB
     Indication: Mantle cell lymphoma
     Dosage: ON DAY 1 OFF EACH CYCLE FOR UPTO 6 28-DAY CYCLES
     Route: 042
  3. RITUXIMAB [Suspect]
     Active Substance: RITUXIMAB
     Indication: Mantle cell lymphoma refractory
  4. ACALABRUTINIB [Suspect]
     Active Substance: ACALABRUTINIB
     Indication: Mantle cell lymphoma
     Dosage: FOR 6 28-DAY CYCLES
     Route: 048
  5. ACALABRUTINIB [Suspect]
     Active Substance: ACALABRUTINIB
     Indication: Mantle cell lymphoma refractory
  6. BENDAMUSTINE [Suspect]
     Active Substance: BENDAMUSTINE
     Indication: Mantle cell lymphoma
     Dosage: FOR 6 28-DAY CYCLES
     Route: 065
  7. BENDAMUSTINE [Suspect]
     Active Substance: BENDAMUSTINE
     Indication: Mantle cell lymphoma refractory

REACTIONS (34)
  - Pneumonitis [Fatal]
  - COVID-19 [Fatal]
  - Meningitis [Fatal]
  - Neutropenia [Unknown]
  - Haemorrhage [Unknown]
  - Hypertension [Unknown]
  - Pneumonia [Unknown]
  - Infection [Unknown]
  - Dyspnoea [Unknown]
  - Oedema peripheral [Unknown]
  - Cardiac failure [Unknown]
  - Leukopenia [Unknown]
  - Second primary malignancy [Unknown]
  - Nausea [Unknown]
  - Diarrhoea [Unknown]
  - Headache [Unknown]
  - Fatigue [Unknown]
  - Pyrexia [Unknown]
  - Dizziness [Unknown]
  - Cough [Unknown]
  - Paraesthesia [Unknown]
  - Hypoaesthesia [Unknown]
  - Myalgia [Unknown]
  - Memory impairment [Unknown]
  - Pruritus [Unknown]
  - Upper respiratory tract infection [Unknown]
  - Vision blurred [Unknown]
  - Tachycardia [Unknown]
  - Pericarditis [Unknown]
  - Cardiac failure chronic [Unknown]
  - Arrhythmia [Unknown]
  - Thrombocytopenia [Unknown]
  - Hepatotoxicity [Unknown]
  - Interstitial lung disease [Unknown]
